FAERS Safety Report 23787400 (Version 1)
Quarter: 2024Q2

REPORT INFORMATION
  Report Type: Spontaneous
  Country: US (occurrence: None)
  Receive Date: 20240425
  Receipt Date: 20240425
  Transmission Date: 20240715
  Serious: Yes (Hospitalization)
  Sender: FDA-Public Use
  Company Number: None

PATIENT
  Age: 43 Year
  Sex: Male

DRUGS (15)
  1. AMBRISENTAN [Suspect]
     Active Substance: AMBRISENTAN
  2. TADALAFIL [Concomitant]
     Active Substance: TADALAFIL
  3. DIGOXIN [Concomitant]
  4. SPIRONOLACTONE [Concomitant]
     Active Substance: SPIRONOLACTONE
  5. LOSARTAN [Concomitant]
     Active Substance: LOSARTAN
  6. JARDIANCE [Concomitant]
     Active Substance: EMPAGLIFLOZIN
  7. CETIRIZINE [Concomitant]
     Active Substance: CETIRIZINE HYDROCHLORIDE
  8. FLONASE [Concomitant]
     Active Substance: FLUTICASONE PROPIONATE
  9. TORSEMIDE [Concomitant]
  10. METOPROLOL [Concomitant]
     Active Substance: METOPROLOL
  11. ATORVASTATIN [Concomitant]
  12. vitamind D3 [Concomitant]
  13. TAMSULOSIN [Concomitant]
  14. ALLOPURINOL [Concomitant]
     Active Substance: ALLOPURINOL
  15. COLCHICINE [Concomitant]

REACTIONS (1)
  - Weight increased [None]

NARRATIVE: CASE EVENT DATE: 20240326
